FAERS Safety Report 25962350 (Version 1)
Quarter: 2025Q4

REPORT INFORMATION
  Report Type: Spontaneous
  Country: EU (occurrence: EU)
  Receive Date: 20251027
  Receipt Date: 20251027
  Transmission Date: 20260118
  Serious: Yes (Other)
  Sender: MYLAN
  Company Number: None

PATIENT
  Age: 42 Year
  Sex: Female
  Weight: 70 kg

DRUGS (4)
  1. TAMOXIFEN [Suspect]
     Active Substance: TAMOXIFEN
     Indication: Invasive ductal breast carcinoma
     Dosage: 1 DOSAGE FORM
  2. TAMOXIFEN [Suspect]
     Active Substance: TAMOXIFEN
     Dosage: 1 DOSAGE FORM
     Route: 048
  3. TAMOXIFEN [Suspect]
     Active Substance: TAMOXIFEN
     Dosage: 1 DOSAGE FORM
     Route: 048
  4. TAMOXIFEN [Suspect]
     Active Substance: TAMOXIFEN
     Dosage: 1 DOSAGE FORM

REACTIONS (1)
  - Eyelid oedema [Not Recovered/Not Resolved]

NARRATIVE: CASE EVENT DATE: 20250201
